FAERS Safety Report 6005976-7 (Version None)
Quarter: 2008Q4

REPORT INFORMATION
  Report Type: 
  Country: None (occurrence: None)
  Receive Date: 20081217
  Receipt Date: 20081209
  Transmission Date: 20090506
  Serious: Yes (Other)
  Sender: FDA-Public Use
  Company Number: PHHY2008JP22514

PATIENT
  Sex: Female
  Weight: 47 kg

DRUGS (9)
  1. ZOMETA [Suspect]
     Indication: METASTASES TO BONE
     Dosage: 4 MG EVERY 4 WEEKS
     Route: 042
     Dates: start: 20060710, end: 20080115
  2. ZOMETA [Suspect]
     Dosage: 4 MG EVERY 4 WEEKS
     Route: 042
     Dates: start: 20080616, end: 20080707
  3. AREDIA [Suspect]
     Indication: METASTASES TO BONE
     Dosage: 90 MG EVERY 4 WEEKS
     Route: 042
     Dates: start: 20060120, end: 20060612
  4. ADRIACIN [Concomitant]
     Indication: METASTASES TO BONE
     Dosage: UNK
     Route: 042
     Dates: start: 20040204, end: 20040408
  5. ENDOXAN [Concomitant]
     Indication: METASTASES TO BONE
     Dosage: UNK
     Route: 042
     Dates: start: 20040204, end: 20040408
  6. TAXOL [Concomitant]
     Indication: METASTASES TO BONE
     Dosage: UNK
     Route: 042
     Dates: start: 20050704, end: 20051128
  7. TAXOTERE [Concomitant]
     Indication: METASTASES TO BONE
     Dosage: UNK
     Route: 042
     Dates: start: 20060120, end: 20060424
  8. TRASTUZUMAB [Concomitant]
     Indication: METASTASES TO BONE
     Dosage: UNK
     Route: 042
     Dates: start: 20060120
  9. HERCEPTIN [Concomitant]
     Indication: METASTASES TO BONE
     Dosage: UNK
     Route: 042
     Dates: start: 20060120

REACTIONS (4)
  - INFLAMMATION [None]
  - OSTEONECROSIS [None]
  - PURULENT DISCHARGE [None]
  - TOOTH EXTRACTION [None]
